FAERS Safety Report 10450047 (Version 3)
Quarter: 2015Q1

REPORT INFORMATION
  Report Type: Spontaneous
  Country: FR (occurrence: FR)
  Receive Date: 20140912
  Receipt Date: 20150107
  Transmission Date: 20150720
  Serious: Yes (Hospitalization)
  Sender: FDA-Public Use
  Company Number: FR-ELI_LILLY_AND_COMPANY-FR201408008083

PATIENT
  Sex: Male

DRUGS (2)
  1. CISPLATINE [Suspect]
     Active Substance: CISPLATIN
     Indication: LUNG ADENOCARCINOMA METASTATIC
     Dosage: 145 MG, CYCLICAL
     Route: 042
     Dates: start: 20121214, end: 20130301
  2. ALIMTA [Suspect]
     Active Substance: PEMETREXED DISODIUM
     Indication: LUNG ADENOCARCINOMA METASTATIC
     Dosage: 970 MG, CYCLICAL
     Route: 042
     Dates: start: 20121214, end: 20140110

REACTIONS (4)
  - Fall [Recovering/Resolving]
  - Vertigo [Unknown]
  - Balance disorder [Recovered/Resolved with Sequelae]
  - Spinal fracture [Recovered/Resolved with Sequelae]

NARRATIVE: CASE EVENT DATE: 2013
